FAERS Safety Report 20917840 (Version 5)
Quarter: 2022Q3

REPORT INFORMATION
  Report Type: Report from Study
  Country: BR (occurrence: BR)
  Receive Date: 20220606
  Receipt Date: 20220718
  Transmission Date: 20221026
  Serious: Yes (Hospitalization)
  Sender: FDA-Public Use
  Company Number: BR-ABBVIE-22K-020-4418099-00

PATIENT
  Sex: Female
  Weight: 69 kg

DRUGS (6)
  1. HUMIRA [Suspect]
     Active Substance: ADALIMUMAB
     Indication: Crohn^s disease
     Dosage: LOADING DOSE OF 80 MG
     Route: 058
     Dates: start: 20200923, end: 2021
  2. HUMIRA [Suspect]
     Active Substance: ADALIMUMAB
     Route: 058
     Dates: end: 202205
  3. HUMIRA [Suspect]
     Active Substance: ADALIMUMAB
     Route: 058
     Dates: start: 20220610
  4. PURAN [Suspect]
     Active Substance: LEVOTHYROXINE SODIUM
     Indication: Product used for unknown indication
     Route: 065
  5. PURAN [Suspect]
     Active Substance: LEVOTHYROXINE SODIUM
     Route: 065
  6. LEVOTHYROXINE SODIUM [Concomitant]
     Active Substance: LEVOTHYROXINE SODIUM
     Indication: Hypothyroidism
     Route: 048

REACTIONS (15)
  - Gastrointestinal inflammation [Recovering/Resolving]
  - Diarrhoea [Recovered/Resolved]
  - Device leakage [Unknown]
  - Product administration error [Unknown]
  - Device difficult to use [Unknown]
  - Immunodeficiency [Unknown]
  - Asthenia [Unknown]
  - Heart rate decreased [Unknown]
  - Emotional distress [Unknown]
  - Blood potassium decreased [Unknown]
  - Swelling [Recovered/Resolved]
  - Arrhythmia [Unknown]
  - Influenza [Not Recovered/Not Resolved]
  - Abdominal pain [Recovered/Resolved]
  - Adverse reaction [Recovered/Resolved]

NARRATIVE: CASE EVENT DATE: 20220101
